FAERS Safety Report 16655346 (Version 17)
Quarter: 2020Q2

REPORT INFORMATION
  Report Type: Spontaneous
  Country: JP (occurrence: JP)
  Receive Date: 20190801
  Receipt Date: 20200528
  Transmission Date: 20200713
  Serious: Yes (Hospitalization, Other)
  Sender: FDA-Public Use
  Company Number: JP-BRISTOL-MYERS SQUIBB COMPANY-BMS-2019-066275

PATIENT
  Age: 68 Year
  Sex: Male

DRUGS (11)
  1. OPDIVO [Suspect]
     Active Substance: NIVOLUMAB
     Indication: PRODUCT USED FOR UNKNOWN INDICATION
     Dosage: UNK UNK, Q2WK
     Route: 041
     Dates: start: 20191009
  2. CELTECT [Concomitant]
     Active Substance: OXATOMIDE
     Indication: PRODUCT USED FOR UNKNOWN INDICATION
     Dosage: UNK
     Route: 065
  3. TAKECAB [Concomitant]
     Active Substance: VONOPRAZAN FUMARATE
     Indication: PRODUCT USED FOR UNKNOWN INDICATION
     Dosage: UNK
     Route: 048
  4. OPDIVO [Suspect]
     Active Substance: NIVOLUMAB
     Indication: MALIGNANT MELANOMA
     Dosage: UNK
     Route: 041
     Dates: start: 20190620, end: 20190725
  5. YERVOY [Suspect]
     Active Substance: IPILIMUMAB
     Indication: PRODUCT USED FOR UNKNOWN INDICATION
     Dosage: UNK
     Route: 041
     Dates: start: 20190820, end: 20190820
  6. OPDIVO [Suspect]
     Active Substance: NIVOLUMAB
     Indication: PRODUCT USED FOR UNKNOWN INDICATION
     Dosage: UNK
     Route: 041
     Dates: start: 20190820, end: 20190820
  7. OPDIVO [Suspect]
     Active Substance: NIVOLUMAB
     Indication: PRODUCT USED FOR UNKNOWN INDICATION
     Dosage: MONOTHERAPY
     Route: 065
     Dates: start: 20200220
  8. TALION [BEPOTASTINE BESILATE] [Suspect]
     Active Substance: BEPOTASTINE BESYLATE
     Indication: PRODUCT USED FOR UNKNOWN INDICATION
     Dosage: UNK
     Route: 048
  9. YERVOY [Suspect]
     Active Substance: IPILIMUMAB
     Indication: MALIGNANT MELANOMA
     Dosage: UNK
     Route: 041
     Dates: start: 20190620, end: 20190725
  10. PYRETHIA [Suspect]
     Active Substance: PROMETHAZINE HYDROCHLORIDE
     Indication: PRODUCT USED FOR UNKNOWN INDICATION
     Dosage: UNK
     Route: 048
  11. FERROMIA [Concomitant]
     Active Substance: SODIUM FERROUS CITRATE
     Indication: PRODUCT USED FOR UNKNOWN INDICATION
     Dosage: UNK
     Route: 048

REACTIONS (47)
  - Colitis [Unknown]
  - Periorbital swelling [Unknown]
  - Haemorrhage [Unknown]
  - Rash [Recovered/Resolved]
  - Constipation [Unknown]
  - Blood lactate dehydrogenase increased [Unknown]
  - Ophthalmic herpes zoster [Recovering/Resolving]
  - Renal impairment [Unknown]
  - Contusion [Unknown]
  - C-reactive protein increased [Unknown]
  - Flatulence [Unknown]
  - Vitreous floaters [Unknown]
  - Diarrhoea [Unknown]
  - Myalgia [Recovered/Resolved]
  - Nausea [Unknown]
  - Weight decreased [Recovering/Resolving]
  - Abdominal distension [Unknown]
  - Fatigue [Unknown]
  - Erythema [Unknown]
  - Acne [Unknown]
  - Tooth loss [Unknown]
  - White blood cell count increased [Unknown]
  - Pyrexia [Unknown]
  - Small intestinal haemorrhage [Unknown]
  - Melaena [Unknown]
  - Large intestine perforation [Unknown]
  - Hair colour changes [Not Recovered/Not Resolved]
  - Dizziness [Unknown]
  - Malaise [Unknown]
  - Hyperthermia [Recovering/Resolving]
  - Vomiting [Unknown]
  - Decreased appetite [Not Recovered/Not Resolved]
  - Gingivitis [Unknown]
  - Stomatitis [Recovering/Resolving]
  - Fall [Unknown]
  - Nervous system disorder [Unknown]
  - Tooth injury [Unknown]
  - Tooth disorder [Unknown]
  - Rhinorrhoea [Unknown]
  - Blister [Unknown]
  - Leukoderma [Unknown]
  - Haematochezia [Unknown]
  - Faeces pale [Unknown]
  - Dermatophytosis of nail [Unknown]
  - Thirst [Recovered/Resolved]
  - Pruritus [Unknown]
  - Dry skin [Unknown]

NARRATIVE: CASE EVENT DATE: 20190624
